FAERS Safety Report 17774550 (Version 1)
Quarter: 2020Q2

REPORT INFORMATION
  Report Type: Spontaneous
  Country: FR (occurrence: FR)
  Receive Date: 20200513
  Receipt Date: 20200513
  Transmission Date: 20200714
  Serious: Yes (Hospitalization)
  Sender: FDA-Public Use
  Company Number: NVSC2020FR128236

PATIENT
  Age: 50 Year
  Sex: Male

DRUGS (8)
  1. DEPAKOTE [Concomitant]
     Active Substance: DIVALPROEX SODIUM
     Indication: PRODUCT USED FOR UNKNOWN INDICATION
     Dosage: 2 DF, QD
     Route: 048
  2. OLANZAPINE. [Suspect]
     Active Substance: OLANZAPINE
     Indication: MENTAL DISORDER
     Dosage: 30 MG, QD
     Route: 048
  3. SCOPODERM [Concomitant]
     Active Substance: SCOPOLAMINE
     Indication: PRODUCT USED FOR UNKNOWN INDICATION
     Dosage: 1 MG, Q72H
     Route: 062
  4. PREDNISOLONE. [Suspect]
     Active Substance: PREDNISOLONE
     Indication: RESPIRATORY TRACT INFECTION
     Dosage: NON RENSEIGNEE
     Route: 048
     Dates: start: 20190821
  5. SALBUTAMOL [Concomitant]
     Active Substance: ALBUTEROL
     Indication: PRODUCT USED FOR UNKNOWN INDICATION
     Dosage: 600 UG, QD
     Route: 055
     Dates: start: 20190821
  6. AMOXICILLINE [Concomitant]
     Active Substance: AMOXICILLIN
     Indication: PRODUCT USED FOR UNKNOWN INDICATION
     Dosage: 3 G, QD
     Route: 048
     Dates: start: 20190821
  7. CLOZAPINE. [Suspect]
     Active Substance: CLOZAPINE
     Indication: MENTAL DISORDER
     Dosage: 200 MG, QD
     Route: 048
  8. LOXAPAC [Suspect]
     Active Substance: LOXAPINE
     Indication: MENTAL DISORDER
     Dosage: 1 DF, QD
     Route: 048

REACTIONS (1)
  - Pneumonia [Recovered/Resolved]

NARRATIVE: CASE EVENT DATE: 20190807
